FAERS Safety Report 25912450 (Version 1)
Quarter: 2025Q4

REPORT INFORMATION
  Report Type: Spontaneous
  Country: KE (occurrence: KE)
  Receive Date: 20251013
  Receipt Date: 20251013
  Transmission Date: 20260117
  Serious: Yes (Death, Other)
  Sender: BRISTOL-MYERS SQUIBB COMPANY
  Company Number: KE-BRISTOL-MYERS SQUIBB COMPANY-2025-138899

PATIENT
  Age: 59 Year
  Sex: Female

DRUGS (6)
  1. OPDIVO [Suspect]
     Active Substance: NIVOLUMAB
     Indication: Oesophageal adenocarcinoma
     Dosage: 1ST DOSE
  2. OPDIVO [Suspect]
     Active Substance: NIVOLUMAB
     Dosage: 2ND DOSE
  3. OPDIVO [Suspect]
     Active Substance: NIVOLUMAB
     Dosage: 3RD DOSE
  4. OPDIVO [Suspect]
     Active Substance: NIVOLUMAB
     Dosage: 4TH DOSE
  5. OPDIVO [Suspect]
     Active Substance: NIVOLUMAB
     Dosage: 5TH DOSE
  6. OPDIVO [Suspect]
     Active Substance: NIVOLUMAB
     Dosage: 6TH DOSE

REACTIONS (1)
  - Death [Fatal]

NARRATIVE: CASE EVENT DATE: 20251002
